FAERS Safety Report 12180821 (Version 3)
Quarter: 2016Q2

REPORT INFORMATION
  Report Type: Spontaneous
  Country: US (occurrence: US)
  Receive Date: 20160315
  Receipt Date: 20160506
  Transmission Date: 20160815
  Serious: No
  Sender: FDA-Public Use
  Company Number: US-PFIZER INC-2016076454

PATIENT
  Age: 64 Year
  Sex: Female
  Weight: 58.96 kg

DRUGS (14)
  1. LEVOTHYROXINE. [Concomitant]
     Active Substance: LEVOTHYROXINE
     Dosage: UNK
  2. OSPHENA [Concomitant]
     Active Substance: OSPEMIFENE
     Dosage: UNK
  3. ASPIRIN. [Concomitant]
     Active Substance: ASPIRIN
  4. LYRICA [Suspect]
     Active Substance: PREGABALIN
     Indication: ARTHRITIS
  5. LYRICA [Suspect]
     Active Substance: PREGABALIN
     Indication: FIBROMYALGIA
     Dosage: 300 MG, 2X/DAY
     Route: 048
     Dates: start: 2003
  6. TEMAZEPAM. [Concomitant]
     Active Substance: TEMAZEPAM
     Dosage: UNK
  7. LINZESS [Concomitant]
     Active Substance: LINACLOTIDE
     Dosage: UNK
  8. CALCI [Concomitant]
     Dosage: UNK
  9. CETRIZINE [Concomitant]
     Active Substance: CETIRIZINE HYDROCHLORIDE
     Dosage: UNK
  10. LYRICA [Suspect]
     Active Substance: PREGABALIN
     Indication: OSTEOARTHRITIS
     Dosage: 225 MG, 2X/DAY
     Route: 048
     Dates: end: 20160127
  11. OMEPRAZOLE. [Concomitant]
     Active Substance: OMEPRAZOLE
     Dosage: UNK
  12. LISINOPRIL AND HYDROCHLOROTHIAZIDE [Concomitant]
     Active Substance: HYDROCHLOROTHIAZIDE\LISINOPRIL
     Dosage: UNK
  13. VITAMIN D3 [Concomitant]
     Active Substance: CHOLECALCIFEROL
  14. MORPHINE SULFATE. [Concomitant]
     Active Substance: MORPHINE SULFATE
     Indication: BACK PAIN
     Dosage: 30 MG, 2X/DAY
     Dates: start: 2014

REACTIONS (10)
  - Intentional product misuse [Unknown]
  - Hypoaesthesia [Unknown]
  - Limb discomfort [Unknown]
  - Paraesthesia [Unknown]
  - Drug dose omission [Unknown]
  - Restless legs syndrome [Unknown]
  - Malaise [Unknown]
  - Drug withdrawal syndrome [Unknown]
  - Pain [Unknown]
  - Drug effect incomplete [Unknown]

NARRATIVE: CASE EVENT DATE: 201602
